FAERS Safety Report 7961279-2 (Version None)
Quarter: 2011Q4

REPORT INFORMATION
  Report Type: 
  Country: None (occurrence: None)
  Receive Date: 20111201
  Receipt Date: 20111201
  Transmission Date: 20120403
  Serious: Yes (Other)
  Sender: FDA-Public Use
  Company Number: None

PATIENT
  Sex: Female
  Weight: 48.1 kg

DRUGS (16)
  1. CIMZIA [Concomitant]
  2. COFFEE [Concomitant]
  3. ZOFRAN [Concomitant]
  4. PRENATAL VITAMIN NOS [Concomitant]
  5. FOLIC ACID [Concomitant]
  6. PREDNISONE TAB [Concomitant]
  7. ACETAMINOPHEN [Concomitant]
  8. IMODIUM A-D [Concomitant]
  9. HUMIRA [Concomitant]
  10. PENTASA [Concomitant]
  11. IRON [Concomitant]
  12. ZITHROMAX [Concomitant]
  13. CAFFEINE CITRATE [Concomitant]
  14. CERTOLIZUMAB [Suspect]
     Indication: CROHN'S DISEASE
     Dosage: 1 SHOT 1 DAY
     Dates: start: 20100802, end: 20100802
  15. CERTOLIZUMAB [Suspect]
     Indication: CROHN'S DISEASE
     Dosage: 1 SHOT 1 DAY
     Dates: start: 20100806, end: 20100806
  16. ASCORBIC ACID [Concomitant]

REACTIONS (2)
  - MATERNAL EXPOSURE DURING PREGNANCY [None]
  - PREGNANCY [None]
